FAERS Safety Report 5205475-6 (Version None)
Quarter: 2006Q4

REPORT INFORMATION
  Report Type: 
  Country: None (occurrence: None)
  Receive Date: 20061027
  Receipt Date: 20051209
  Transmission Date: 20070319
  Serious: Yes (Other)
  Sender: FDA-Public Use
  Company Number: HQWYE947012DEC05

PATIENT
  Age: 53 Year
  Sex: Female
  Weight: 96.25 kg

DRUGS (8)
  1. PREMARIN [Suspect]
     Indication: HOT FLUSH
     Dosage: SEE IMAGE, ORAL
     Route: 048
     Dates: start: 20000101, end: 20050401
  2. PREMARIN [Suspect]
     Indication: HOT FLUSH
     Dosage: SEE IMAGE, ORAL
     Route: 048
     Dates: start: 20050401
  3. ZANTAC [Concomitant]
  4. ASPIRIN [Concomitant]
  5. NEURONTIN [Concomitant]
  6. TOPROL-XL [Concomitant]
  7. CRESTOR [Concomitant]
  8. LISINOPRIL [Concomitant]

REACTIONS (2)
  - DRUG INEFFECTIVE [None]
  - MEDICATION ERROR [None]
